FAERS Safety Report 6697276-7 (Version None)
Quarter: 2010Q2

REPORT INFORMATION
  Report Type: 
  Country: None (occurrence: None)
  Receive Date: 20100426
  Receipt Date: 20100414
  Transmission Date: 20101027
  Serious: Yes (Hospitalization)
  Sender: FDA-Public Use
  Company Number: US-ELI_LILLY_AND_COMPANY-US201004006019

PATIENT
  Sex: Male

DRUGS (3)
  1. ZYPREXA [Suspect]
     Indication: ANXIETY
     Dosage: UNK, UNK
     Dates: start: 20010101
  2. ZYPREXA [Suspect]
     Dosage: 2.5 MG, UNK
  3. ZYPREXA [Suspect]
     Dosage: 5 MG, UNK
     Dates: start: 20090201

REACTIONS (5)
  - ACNE [None]
  - FATIGUE [None]
  - HERNIA REPAIR [None]
  - OFF LABEL USE [None]
  - TINNITUS [None]
